FAERS Safety Report 5976475-3 (Version None)
Quarter: 2008Q4

REPORT INFORMATION
  Report Type: 
  Country: None (occurrence: None)
  Receive Date: 20081125
  Receipt Date: 20081114
  Transmission Date: 20090506
  Serious: Yes (Hospitalization)
  Sender: FDA-Public Use
  Company Number: WAES 0807USA04472

PATIENT
  Age: 81 Year
  Sex: Male
  Weight: 65.7716 kg

DRUGS (34)
  1. CAP VORINOSTAT UNK [Suspect]
     Indication: ACUTE MYELOID LEUKAEMIA
     Dosage: 400 MG/DAILY/PO
     Route: 048
     Dates: start: 20080303, end: 20080316
  2. CAP VORINOSTAT UNK [Suspect]
     Indication: ACUTE MYELOID LEUKAEMIA
     Dosage: 400 MG/DAILY/PO
     Route: 048
     Dates: start: 20080331, end: 20080413
  3. CAP VORINOSTAT UNK [Suspect]
     Indication: ACUTE MYELOID LEUKAEMIA
     Dosage: 400 MG/DAILY/PO
     Route: 048
     Dates: start: 20080605, end: 20080618
  4. CAP VORINOSTAT UNK [Suspect]
     Indication: ACUTE MYELOID LEUKAEMIA
     Dosage: 400 MG/DAILY/PO
     Route: 048
     Dates: start: 20080717, end: 20080730
  5. DECITABINE 38.2 MG 38.4 MG 37.4 MG UNK [Suspect]
     Indication: ACUTE MYELOID LEUKAEMIA
     Dosage: 38.2 MG/DAILY/IV; 38.4 MG/DAILY/IV; 37.4 MG/DAILY/IV; 36.8 MG/DAILY/IV
     Route: 042
     Dates: start: 20080303, end: 20080307
  6. DECITABINE 38.2 MG 38.4 MG 37.4 MG UNK [Suspect]
     Indication: ACUTE MYELOID LEUKAEMIA
     Dosage: 38.2 MG/DAILY/IV; 38.4 MG/DAILY/IV; 37.4 MG/DAILY/IV; 36.8 MG/DAILY/IV
     Route: 042
     Dates: start: 20080331, end: 20080404
  7. DECITABINE 38.2 MG 38.4 MG 37.4 MG UNK [Suspect]
     Indication: ACUTE MYELOID LEUKAEMIA
     Dosage: 38.2 MG/DAILY/IV; 38.4 MG/DAILY/IV; 37.4 MG/DAILY/IV; 36.8 MG/DAILY/IV
     Route: 042
     Dates: start: 20080428, end: 20080502
  8. DECITABINE 38.2 MG 38.4 MG 37.4 MG UNK [Suspect]
     Indication: ACUTE MYELOID LEUKAEMIA
     Dosage: 38.2 MG/DAILY/IV; 38.4 MG/DAILY/IV; 37.4 MG/DAILY/IV; 36.8 MG/DAILY/IV
     Route: 042
     Dates: start: 20080605, end: 20080609
  9. DECITABINE 38.2 MG 38.4 MG 37.4 MG UNK [Suspect]
     Indication: ACUTE MYELOID LEUKAEMIA
     Dosage: 38.2 MG/DAILY/IV; 38.4 MG/DAILY/IV; 37.4 MG/DAILY/IV; 36.8 MG/DAILY/IV
     Route: 042
     Dates: start: 20080717, end: 20080721
  10. ASACOL [Concomitant]
  11. CELEXA [Concomitant]
  12. COMPAZINE [Concomitant]
  13. FLOMAX (MORNIFLUMATE) [Concomitant]
  14. IMODIUM [Concomitant]
  15. KEPPRA [Concomitant]
  16. MEGACE [Concomitant]
  17. PROTONIX [Concomitant]
  18. TYLENOL (CAPLET) [Concomitant]
  19. UNISOM (DIPHENHYDRAMINE HYDROCHLORIDE) [Concomitant]
  20. ZOCOR [Concomitant]
  21. ACYCLOVIR [Concomitant]
  22. CLOTRIMAZOLE [Concomitant]
  23. CYANOCOBALAMIN [Concomitant]
  24. DIPHENHYDRAMINE HYDROCHLORIDE [Concomitant]
  25. FUROSEMIDE [Concomitant]
  26. LORAZEPAM [Concomitant]
  27. MAGNESIUM SULFATE [Concomitant]
  28. METOPROLOL TARTRATE [Concomitant]
  29. ONDANSETRON [Concomitant]
  30. OXYCODONE HCL [Concomitant]
  31. PHYTONADIONE [Concomitant]
  32. POTASSIUM CHLORIDE [Concomitant]
  33. SENNOSIDES [Concomitant]
  34. VITAMINS (UNSPECIFIED) [Concomitant]

REACTIONS (23)
  - ARTERIOSCLEROSIS [None]
  - CAROTID ARTERY OCCLUSION [None]
  - CHEST PAIN [None]
  - DEHYDRATION [None]
  - DIVERTICULUM [None]
  - DYSPHAGIA [None]
  - FALL [None]
  - INSOMNIA [None]
  - LIVER DISORDER [None]
  - LYMPHADENOPATHY [None]
  - MYOCARDIAL INFARCTION [None]
  - NORMAL PRESSURE HYDROCEPHALUS [None]
  - OESOPHAGEAL CANDIDIASIS [None]
  - PNEUMONIA [None]
  - PULMONARY OEDEMA [None]
  - SIALOADENITIS [None]
  - SINUS TACHYCARDIA [None]
  - SUBDURAL HAEMATOMA [None]
  - SUPRAVENTRICULAR EXTRASYSTOLES [None]
  - SWELLING FACE [None]
  - URINARY RETENTION [None]
  - URINE OUTPUT DECREASED [None]
  - WITHDRAWAL SYNDROME [None]
